FAERS Safety Report 6967329-4 (Version None)
Quarter: 2010Q3

REPORT INFORMATION
  Report Type: 
  Country: None (occurrence: None)
  Receive Date: 20100907
  Receipt Date: 20100825
  Transmission Date: 20110219
  Serious: Yes (Hospitalization, Other)
  Sender: FDA-Public Use
  Company Number: DE-BAYER-201036543GPV

PATIENT
  Age: 53 Year
  Sex: Male
  Weight: 80 kg

DRUGS (1)
  1. BETAFERON [Suspect]
     Indication: MULTIPLE SCLEROSIS
     Dates: start: 19950101

REACTIONS (5)
  - ERYSIPELAS [None]
  - GROIN PAIN [None]
  - LYMPHADENOPATHY [None]
  - PYREXIA [None]
  - SKIN DISORDER [None]
